FAERS Safety Report 18961038 (Version 2)
Quarter: 2021Q1

REPORT INFORMATION
  Report Type: Spontaneous
  Country: AU (occurrence: AU)
  Receive Date: 20210303
  Receipt Date: 20210323
  Transmission Date: 20210420
  Serious: Yes (Other)
  Sender: FDA-Public Use
  Company Number: AU-ASTRAZENECA-2021A092794

PATIENT
  Age: 26895 Day
  Sex: Male

DRUGS (3)
  1. DIAMOX SEQUELS [Concomitant]
     Active Substance: ACETAZOLAMIDE
     Indication: CATARACT OPERATION
     Dosage: 2 TABLETS (JUST SINGLE DOSE POST CATARACT SURGERY) FOLLOWED BY 1 TABLET? 4 TIMES A DAY FOR ABOUT ...
     Route: 065
  2. DIAMOX SEQUELS [Concomitant]
     Active Substance: ACETAZOLAMIDE
     Indication: CATARACT OPERATION
     Dosage: 1 TABLET? 4 TIMES A DAY FOR ABOUT 2 WEEKS UNKNOWN
     Route: 065
     Dates: start: 20210201
  3. CRESTOR [Suspect]
     Active Substance: ROSUVASTATIN CALCIUM
     Indication: BLOOD CHOLESTEROL
     Route: 048

REACTIONS (6)
  - Abdominal pain upper [Unknown]
  - Illness [Unknown]
  - Cataract [Unknown]
  - Pain [Recovered/Resolved]
  - Visual impairment [Unknown]
  - Blindness unilateral [Unknown]
